FAERS Safety Report 5658965-6 (Version None)
Quarter: 2008Q1

REPORT INFORMATION
  Report Type: 
  Country: None (occurrence: None)
  Receive Date: 20080310
  Receipt Date: 20070515
  Transmission Date: 20080703
  Serious: No
  Sender: FDA-Public Use
  Company Number: US-BAYER-200711507BCC

PATIENT
  Age: 53 Year
  Sex: Female
  Weight: 125 kg

DRUGS (5)
  1. ALEVE (CAPLET) [Suspect]
     Indication: DRUG USE FOR UNKNOWN INDICATION
     Dosage: TOTAL DAILY DOSE: 440 MG  UNIT DOSE: 220 MG
     Route: 048
     Dates: start: 20070507, end: 20070507
  2. ALEVE (CAPLET) [Suspect]
     Dosage: UNIT DOSE: 220 MG
     Route: 048
     Dates: start: 20070509
  3. ALEVE (CAPLET) [Suspect]
     Dosage: TOTAL DAILY DOSE: 220 MG  UNIT DOSE: 220 MG
     Route: 048
     Dates: start: 20070511
  4. AMOXICILLIN [Suspect]
     Indication: TOOTH ABSCESS
     Dates: start: 20070511, end: 20070511
  5. AMOXICILLIN [Suspect]
     Dates: start: 20070513

REACTIONS (1)
  - SWELLING FACE [None]
